FAERS Safety Report 19065958 (Version 2)
Quarter: 2021Q2

REPORT INFORMATION
  Report Type: Report from Study
  Country: MX (occurrence: MX)
  Receive Date: 20210327
  Receipt Date: 20210407
  Transmission Date: 20210717
  Serious: Yes (Hospitalization, Other)
  Sender: FDA-Public Use
  Company Number: NVSC2021MX063886

PATIENT
  Age: 65 Year
  Sex: Female
  Weight: 69 kg

DRUGS (12)
  1. ESCITALOPRAM [Concomitant]
     Active Substance: ESCITALOPRAM OXALATE
     Indication: ANXIETY
     Dosage: 1(10 MG), QD (2 YEARS AGO)
     Route: 048
  2. LEVOTHYROXINE. [Concomitant]
     Active Substance: LEVOTHYROXINE
     Indication: THYROID CANCER
     Dosage: UNK
     Route: 048
     Dates: start: 202009
  3. LADOGAL [Concomitant]
     Active Substance: DANAZOL
     Indication: LUPUS-LIKE SYNDROME
     Dosage: 3 (100 MG), QD
     Route: 048
     Dates: start: 202009
  4. METICORTEN [Concomitant]
     Active Substance: PREDNISONE
     Indication: LUPUS-LIKE SYNDROME
     Dosage: 2 (5 MG), QD (2 YEARS AGO)
     Route: 048
  5. CITRACAL [Concomitant]
     Active Substance: CALCIUM CITRATE
     Indication: BLOOD CALCIUM
     Dosage: 1 (315 / 200UI) QD (2 YEARS AGO)
     Route: 048
  6. REVOLADE [Suspect]
     Active Substance: ELTROMBOPAG OLAMINE
     Indication: LUPUS-LIKE SYNDROME
     Dosage: 1 DF, QD
     Route: 048
     Dates: start: 202009
  7. PLAQUENIL [Concomitant]
     Active Substance: HYDROXYCHLOROQUINE SULFATE
     Indication: LUPUS-LIKE SYNDROME
     Dosage: 1 (200 MG), QD (2 YEAR AGO)
     Route: 048
  8. ESOMEPRAZOLE. [Concomitant]
     Active Substance: ESOMEPRAZOLE MAGNESIUM
     Indication: ABDOMINAL PAIN UPPER
     Dosage: 1 DF, QD
     Route: 048
     Dates: start: 202012
  9. XARELTO [Concomitant]
     Active Substance: RIVAROXABAN
     Indication: PRODUCT USED FOR UNKNOWN INDICATION
     Dosage: 1(15 MG), QD
     Route: 048
     Dates: start: 202012
  10. REVOLADE [Suspect]
     Active Substance: ELTROMBOPAG OLAMINE
     Dosage: 1 DF, QD
     Route: 048
     Dates: start: 202009
  11. FOLIC ACID. [Concomitant]
     Active Substance: FOLIC ACID
     Indication: LUPUS-LIKE SYNDROME
     Dosage: 2 (400 MG), QD (2 YEARS AGO)
     Route: 048
  12. FILATIL [Concomitant]
     Indication: DECREASED IMMUNE RESPONSIVENESS
     Dosage: 1 (300 MG) EVERY 5 DAYS
     Route: 058
     Dates: start: 202009

REACTIONS (5)
  - Choroidal effusion [Not Recovered/Not Resolved]
  - Product use in unapproved indication [Unknown]
  - Thyroid mass [Unknown]
  - Abdominal distension [Not Recovered/Not Resolved]
  - Ill-defined disorder [Not Recovered/Not Resolved]

NARRATIVE: CASE EVENT DATE: 202012
